FAERS Safety Report 7486883-X (Version None)
Quarter: 2011Q2

REPORT INFORMATION
  Report Type: 
  Country: None (occurrence: None)
  Receive Date: 20110517
  Receipt Date: 20110510
  Transmission Date: 20111010
  Serious: Yes (Hospitalization)
  Sender: FDA-Public Use
  Company Number: US-GILEAD-2011-0037029

PATIENT
  Sex: Female

DRUGS (2)
  1. REMODULIN [Concomitant]
  2. LETAIRIS [Suspect]
     Indication: PRODUCT USED FOR UNKNOWN INDICATION
     Route: 048
     Dates: start: 20070808

REACTIONS (11)
  - DIARRHOEA [None]
  - FLUSHING [None]
  - ANEURYSM [None]
  - THROMBOSIS [None]
  - GASTROINTESTINAL HAEMORRHAGE [None]
  - HEADACHE [None]
  - PAIN IN JAW [None]
  - PAIN IN EXTREMITY [None]
  - LOCAL SWELLING [None]
  - HAEMATOMA [None]
  - OEDEMA PERIPHERAL [None]
